FAERS Safety Report 22644437 (Version 2)
Quarter: 2023Q2

REPORT INFORMATION
  Report Type: Other
  Country: US (occurrence: None)
  Receive Date: 20230627
  Receipt Date: 20230628
  Transmission Date: 20230722
  Serious: No
  Sender: FDA-Public Use
  Company Number: US-ROCHE-3377513

PATIENT
  Age: 54 Year
  Sex: Female

DRUGS (5)
  1. OCREVUS [Suspect]
     Active Substance: OCRELIZUMAB
     Indication: Relapsing-remitting multiple sclerosis
     Dosage: THE PATIENT STATED SHE RECEIVES IT TWICE A YEAR (600 MG EVERY 6 MONTHS), DATE OF TREATMENT: 01/JUN/2
     Route: 042
  2. LEVOTHYROXINE [Concomitant]
     Active Substance: LEVOTHYROXINE
     Indication: Hypothyroidism
     Dosage: THE PATIENT STATED THE DOSE IS 100 MCG AND SHE TAKES 1 PILL 6 DAYS A WEEK ;ONGOING: YES
     Route: 048
  3. GABAPENTIN [Concomitant]
     Active Substance: GABAPENTIN
     Indication: Neuralgia
     Dosage: 300 MG ORAL PILL, TWICE A DAY THE PATIENT STATED SHE HAS BEEN ON IT A FEW YEARS, PROBABLY 4 OR 5 YEA
  4. LEXAPRO [Concomitant]
     Active Substance: ESCITALOPRAM OXALATE
     Indication: Anxiety
     Dosage: 20 MG ORAL PILL, ONCE A DAY, THE PATIENT STATED SHE HAS BEEN ON IT PROBABLY CLOSER TO 10 YEARS ;ONGO
  5. AMITRIPTYLINE [Concomitant]
     Active Substance: AMITRIPTYLINE
     Dosage: ORAL TABLET, PATIENT STATED SHE THINKS SHE STARTED IT IN --2013 ;ONGOING: YES

REACTIONS (3)
  - COVID-19 [Not Recovered/Not Resolved]
  - Postmenopausal haemorrhage [Not Recovered/Not Resolved]
  - Back injury [Not Recovered/Not Resolved]

NARRATIVE: CASE EVENT DATE: 20220101
